FAERS Safety Report 4762770-2 (Version None)
Quarter: 2005Q3

REPORT INFORMATION
  Report Type: 
  Country: None (occurrence: None)
  Receive Date: 20050907
  Receipt Date: 20050609
  Transmission Date: 20060218
  Serious: Yes (Life-Threatening, Hospitalization, Other)
  Sender: FDA-Public Use
  Company Number: US-MERCK-0506USA01687

PATIENT
  Age: 77 Year
  Sex: Female
  Weight: 61 kg

DRUGS (5)
  1. VIOXX [Suspect]
     Indication: ARTHRITIS
     Route: 048
     Dates: start: 20000501, end: 20041201
  2. DILANTIN [Concomitant]
     Indication: CONVULSION
     Route: 065
     Dates: start: 19880101
  3. VITAMINS (UNSPECIFIED) [Concomitant]
     Route: 065
     Dates: end: 20041224
  4. OS-CAL + D [Concomitant]
     Indication: BONE DISORDER
     Route: 065
     Dates: start: 19860101
  5. ASCORBIC ACID [Concomitant]
     Indication: PROPHYLAXIS
     Route: 065
     Dates: start: 20040101

REACTIONS (5)
  - BLOOD SODIUM DECREASED [None]
  - CHONDROPATHY [None]
  - CONVULSION [None]
  - CORONARY ARTERY THROMBOSIS [None]
  - DIABETES MELLITUS [None]
